FAERS Safety Report 21203907 (Version 1)
Quarter: 2022Q3

REPORT INFORMATION
  Report Type: Report from Study
  Country: CA (occurrence: CA)
  Receive Date: 20220811
  Receipt Date: 20220811
  Transmission Date: 20221027
  Serious: Yes (Other)
  Sender: FDA-Public Use
  Company Number: CA-ABBVIE-22K-028-4495999-00

PATIENT
  Sex: Male

DRUGS (1)
  1. RINVOQ [Suspect]
     Active Substance: UPADACITINIB
     Indication: Rheumatoid arthritis
     Route: 048
     Dates: start: 20220409

REACTIONS (9)
  - Trigger finger [Not Recovered/Not Resolved]
  - Ulcer [Unknown]
  - Joint lock [Unknown]
  - Illness [Recovered/Resolved]
  - Chills [Recovered/Resolved]
  - Chills [Unknown]
  - Arthritis [Unknown]
  - Pyrexia [Unknown]
  - Pyrexia [Recovered/Resolved]

NARRATIVE: CASE EVENT DATE: 20220101
